FAERS Safety Report 5392111-1 (Version None)
Quarter: 2007Q3

REPORT INFORMATION
  Report Type: 
  Country: None (occurrence: None)
  Receive Date: 20070717
  Receipt Date: 20070717
  Transmission Date: 20080115
  Serious: Yes (Other)
  Sender: FDA-Public Use
  Company Number: None

PATIENT
  Sex: Male

DRUGS (1)
  1. FENOLDOPAM MESYLATE [Suspect]
     Indication: RENAL FAILURE CHRONIC
     Dates: start: 20070417, end: 20070417

REACTIONS (1)
  - NO ADVERSE REACTION [None]
